FAERS Safety Report 7704314-9 (Version None)
Quarter: 2011Q3

REPORT INFORMATION
  Report Type: 
  Country: None (occurrence: None)
  Receive Date: 20110823
  Receipt Date: 20110818
  Transmission Date: 20111222
  Serious: Yes (Life-Threatening, Hospitalization)
  Sender: FDA-Public Use
  Company Number: PHHY2011FR74291

PATIENT
  Age: 89 Year
  Sex: Female

DRUGS (6)
  1. STABLON [Concomitant]
     Dosage: UNK UKN, UNK
  2. ACTONEL [Concomitant]
     Dosage: UNK UKN, UNK
  3. EXELON [Suspect]
     Dosage: 9.5 MG, DAIL;Y
     Route: 062
     Dates: start: 20110510
  4. LERCANIDIPINE [Concomitant]
     Dosage: UNK UKN, UNK
  5. EXELON [Suspect]
     Dosage: 9.5 MG, DAIL;Y
     Route: 062
     Dates: end: 20110509
  6. MEMANTINE HYDROCHLORIDE [Suspect]
     Dosage: 20 MG, DAILY
     Dates: start: 20110421, end: 20110509

REACTIONS (3)
  - BRADYCARDIA [None]
  - ATRIOVENTRICULAR BLOCK SECOND DEGREE [None]
  - AUTONOMIC NERVOUS SYSTEM IMBALANCE [None]
